FAERS Safety Report 10752976 (Version 2)
Quarter: 2015Q1

REPORT INFORMATION
  Report Type: Report from Study
  Country: PE (occurrence: PE)
  Receive Date: 20150130
  Receipt Date: 20150228
  Transmission Date: 20150721
  Serious: Yes (Death, Hospitalization)
  Sender: FDA-Public Use
  Company Number: PHHY2015PE011221

PATIENT
  Sex: Male
  Weight: 55 kg

DRUGS (2)
  1. GLIVEC [Suspect]
     Active Substance: IMATINIB MESYLATE
     Dosage: 800 MG, QD
     Route: 048
     Dates: start: 201412
  2. GLIVEC [Suspect]
     Active Substance: IMATINIB MESYLATE
     Indication: CHRONIC MYELOID LEUKAEMIA
     Dosage: 400 MG, QD
     Route: 048
     Dates: start: 200507

REACTIONS (9)
  - Ascites [Fatal]
  - General physical health deterioration [Fatal]
  - Infection [Fatal]
  - Lung infection [Fatal]
  - Pneumonia [Fatal]
  - Metabolic disorder [Fatal]
  - Chronic myeloid leukaemia [Fatal]
  - Pleural effusion [Fatal]
  - Thrombocytosis [Fatal]

NARRATIVE: CASE EVENT DATE: 2012
